FAERS Safety Report 9498517 (Version 3)
Quarter: 2014Q1

REPORT INFORMATION
  Report Type: Spontaneous
  Country: GB (occurrence: GB)
  Receive Date: 20130904
  Receipt Date: 20140116
  Transmission Date: 20141002
  Serious: Yes (Hospitalization)
  Sender: FDA-Public Use
  Company Number: GB-GLAXOSMITHKLINE-B0902843A

PATIENT
  Age: 57 Year
  Sex: Male

DRUGS (2)
  1. AVANDIA [Suspect]
     Indication: TYPE 2 DIABETES MELLITUS
     Route: 065
     Dates: start: 2004, end: 2007
  2. METFORMIN [Concomitant]
     Route: 048
     Dates: start: 2004

REACTIONS (1)
  - Aortic valve stenosis [Recovered/Resolved]
